FAERS Safety Report 6105275-9 (Version None)
Quarter: 2009Q1

REPORT INFORMATION
  Report Type: 
  Country: None (occurrence: None)
  Receive Date: 20090303
  Receipt Date: 20090219
  Transmission Date: 20090719
  Serious: Yes (Other)
  Sender: FDA-Public Use
  Company Number: 2009AP000624

PATIENT
  Sex: Male

DRUGS (1)
  1. TRAZODONE HCL [Suspect]
     Dosage: 100 MG PO
     Route: 048

REACTIONS (3)
  - ABDOMINAL DISCOMFORT [None]
  - TINNITUS [None]
  - VISION BLURRED [None]
